FAERS Safety Report 13790555 (Version 1)
Quarter: 2017Q3

REPORT INFORMATION
  Report Type: Spontaneous
  Country: GB (occurrence: GB)
  Receive Date: 20170725
  Receipt Date: 20170725
  Transmission Date: 20171127
  Serious: Yes (Life-Threatening)
  Sender: FDA-Public Use
  Company Number: GB-BAYER-2017-140126

PATIENT
  Age: 47 Year
  Sex: Female

DRUGS (2)
  1. NAPROXEN SODIUM ({= 220 MG) [Suspect]
     Active Substance: NAPROXEN SODIUM
     Indication: JOINT INJURY
     Dosage: 500 MG, BID
     Route: 048
     Dates: end: 20170711
  2. CO-DYDRAMOL [Concomitant]
     Active Substance: ACETAMINOPHEN\DIHYDROCODEINE
     Indication: JOINT INJURY
     Dosage: UNK UNK, PRN
     Route: 048

REACTIONS (2)
  - Duodenal ulcer perforation [None]
  - Haematemesis [None]

NARRATIVE: CASE EVENT DATE: 20170711
